FAERS Safety Report 5017539-0 (Version None)
Quarter: 2006Q2

REPORT INFORMATION
  Report Type: 
  Country: None (occurrence: None)
  Receive Date: 20060525
  Receipt Date: 20060503
  Transmission Date: 20061013
  Serious: Yes (Hospitalization)
  Sender: FDA-Public Use
  Company Number: US200604001699

PATIENT
  Age: 79 Year
  Sex: Female
  Weight: 59 kg

DRUGS (3)
  1. FORTEO [Suspect]
     Indication: OSTEOPOROSIS
     Dosage: SEE IMAGE
     Dates: start: 20041115, end: 20050501
  2. FORTEO [Suspect]
     Indication: OSTEOPOROSIS
     Dosage: SEE IMAGE
     Dates: start: 20060201
  3. FORTEO PEN (FORTEO PEN) [Concomitant]

REACTIONS (3)
  - FALL [None]
  - PHARMACEUTICAL PRODUCT COMPLAINT [None]
  - THORACIC VERTEBRAL FRACTURE [None]
